FAERS Safety Report 6481370-X (Version None)
Quarter: 2009Q4

REPORT INFORMATION
  Report Type: 
  Country: None (occurrence: None)
  Receive Date: 20091208
  Receipt Date: 20091124
  Transmission Date: 20100525
  Serious: Yes (Hospitalization)
  Sender: FDA-Public Use
  Company Number: JP-SANOFI-AVENTIS-2009SA005645

PATIENT
  Age: 78 Year
  Sex: Male

DRUGS (4)
  1. OXALIPLATIN [Suspect]
     Indication: COLON CANCER
     Route: 041
  2. CALCIUM LEVOFOLINATE [Suspect]
     Indication: COLON CANCER
     Route: 042
  3. FLUOROURACIL [Suspect]
     Indication: COLON CANCER
     Route: 040
  4. FLUOROURACIL [Suspect]
     Route: 041

REACTIONS (1)
  - NECROTISING OESOPHAGITIS [None]
